FAERS Safety Report 8474294-X (Version None)
Quarter: 2012Q2

REPORT INFORMATION
  Report Type: 
  Country: None (occurrence: None)
  Receive Date: 20120621
  Receipt Date: 20120606
  Transmission Date: 20120825
  Serious: Yes (Other)
  Sender: FDA-Public Use
  Company Number: 2012P1038985

PATIENT
  Age: 58 Year
  Sex: Male
  Weight: 66.6788 kg

DRUGS (8)
  1. DILAUDID [Concomitant]
  2. PHENERGAN HCL [Concomitant]
  3. ZOFRAN [Concomitant]
  4. LOZENGE [Concomitant]
  5. FENTANYL-50 [Suspect]
     Indication: PROCEDURAL PAIN
     Dosage: 1 PATCH;Q72H;TDER
     Route: 062
     Dates: start: 20120101, end: 20120518
  6. FENTANYL-50 [Suspect]
     Indication: PROCEDURAL PAIN
     Dosage: 1 PATCH;Q72H;TDER
     Route: 062
     Dates: start: 20120521
  7. FENTANYL [Suspect]
     Indication: PROCEDURAL PAIN
     Dosage: 1 PATCH;Q72H;TDER
     Route: 062
     Dates: start: 20120515, end: 20120603
  8. FENTANYL-100 [Concomitant]

REACTIONS (8)
  - FATIGUE [None]
  - LETHARGY [None]
  - VOMITING [None]
  - SUICIDAL IDEATION [None]
  - NAUSEA [None]
  - UNDERDOSE [None]
  - DRUG WITHDRAWAL SYNDROME [None]
  - ABNORMAL BEHAVIOUR [None]
